FAERS Safety Report 23394813 (Version 2)
Quarter: 2024Q4

REPORT INFORMATION
  Report Type: Spontaneous
  Country: CA (occurrence: CA)
  Receive Date: 20240112
  Receipt Date: 20241030
  Transmission Date: 20250114
  Serious: Yes (Other)
  Sender: CELLTRION
  Company Number: CA-CELLTRION INC.-2024CA000477

PATIENT

DRUGS (6)
  1. YUFLYMA [Suspect]
     Active Substance: ADALIMUMAB-AATY
     Indication: Psoriasis
     Dosage: 40 MG, Q2WEEKS
     Route: 058
     Dates: start: 20231228
  2. METHOTREXATE [Concomitant]
     Active Substance: METHOTREXATE
     Dosage: UNK
     Dates: start: 20231115
  3. FOLIC ACID [Concomitant]
     Active Substance: FOLIC ACID
     Dosage: TAKEN A DAY AFTER METHOTREXATE INJECTION AS ORDERED BY MD
  4. VITAMIN B12 [Concomitant]
     Active Substance: CYANOCOBALAMIN
     Dosage: UNK, MONTHLY
  5. METHOTREXATE [Concomitant]
     Active Substance: METHOTREXATE
  6. CYANOCOBALAMIN [Concomitant]
     Active Substance: CYANOCOBALAMIN
     Dosage: 1 EVERY 1 MONTHS

REACTIONS (1)
  - Oropharyngeal pain [Not Recovered/Not Resolved]
